FAERS Safety Report 16162664 (Version 1)
Quarter: 2019Q2

REPORT INFORMATION
  Report Type: Spontaneous
  Country: US (occurrence: US)
  Receive Date: 20190404
  Receipt Date: 20190404
  Transmission Date: 20190711
  Serious: Yes (Hospitalization)
  Sender: FDA-Public Use
  Company Number: None

PATIENT
  Age: 37 Year
  Sex: Male

DRUGS (4)
  1. IMODIUM A-D LIG [Concomitant]
     Dates: start: 20190403
  2. TESTOST CYP INJ [Concomitant]
     Dates: start: 20190403
  3. HUMIRA [Suspect]
     Active Substance: ADALIMUMAB
     Indication: CROHN^S DISEASE
     Dosage: ?          OTHER FREQUENCY:EVERY 2 WEEKS;?
     Route: 058
     Dates: start: 20180210
  4. MILTIVITAMIN [Concomitant]
     Dates: start: 20190403

REACTIONS (4)
  - Abdominal pain [None]
  - Diarrhoea [None]
  - Therapy non-responder [None]
  - Somnolence [None]
